FAERS Safety Report 4839795-1 (Version None)
Quarter: 2005Q4

REPORT INFORMATION
  Report Type: 
  Country: None (occurrence: None)
  Receive Date: 20051129
  Receipt Date: 20050919
  Transmission Date: 20060501
  Serious: No
  Sender: FDA-Public Use
  Company Number: US-GLAXOSMITHKLINE-A0574807A

PATIENT
  Age: 57 Year
  Sex: Male

DRUGS (8)
  1. WELLBUTRIN SR [Suspect]
     Indication: DEPRESSION
     Dosage: 150MG PER DAY
     Route: 048
     Dates: start: 20050628, end: 20050917
  2. QUETIAPINE FUMARATE [Concomitant]
  3. LORAZEPAM [Concomitant]
  4. CITALOPRAM HYDROBROMIDE [Concomitant]
  5. ZOCOR [Concomitant]
  6. UNKNOWN MEDICATION [Concomitant]
  7. CYCLOBENZAPRINE HCL [Concomitant]
  8. TRAMADOL [Concomitant]

REACTIONS (3)
  - INTERVERTEBRAL DISC PROTRUSION [None]
  - URINARY RETENTION [None]
  - WEIGHT INCREASED [None]
